FAERS Safety Report 22005995 (Version 3)
Quarter: 2023Q1

REPORT INFORMATION
  Report Type: Other
  Country: CA (occurrence: None)
  Receive Date: 20230217
  Receipt Date: 20230310
  Transmission Date: 20230417
  Serious: Yes (Hospitalization, Other)
  Sender: FDA-Public Use
  Company Number: CA-ROCHE-3283624

PATIENT
  Sex: Female

DRUGS (29)
  1. RITUXAN [Suspect]
     Active Substance: RITUXIMAB
     Indication: Polymyositis
     Dosage: DRUG DOSE FIRST ADMINISTERED IS 1000 MG MILLIGRAM(S)MOREDOSAGEINFO IS DAY 1, DAY 15
     Route: 042
     Dates: start: 20190502, end: 20201214
  2. CELLCEPT [Suspect]
     Active Substance: MYCOPHENOLATE MOFETIL
     Indication: Product used for unknown indication
     Dosage: DRUG DOSE FIRST ADMINISTERED IS 1000 MG MILLIGRAM(S)
     Route: 048
     Dates: start: 20170104
  3. CELLCEPT [Suspect]
     Active Substance: MYCOPHENOLATE MOFETIL
     Dosage: DRUG DOSE FIRST ADMINISTERED IS 1500 MG MILLIGRAM(S)
     Route: 048
  4. ETANERCEPT [Suspect]
     Active Substance: ETANERCEPT
     Indication: Product used for unknown indication
     Route: 065
  5. ACETAMINOPHEN [Concomitant]
     Active Substance: ACETAMINOPHEN
  6. ASCORBIC ACID [Concomitant]
     Active Substance: ASCORBIC ACID
  7. BENADRYL [Concomitant]
     Active Substance: DIPHENHYDRAMINE HYDROCHLORIDE
     Indication: Premedication
     Route: 048
     Dates: start: 20190502
  8. CALCIUM [Concomitant]
     Active Substance: CALCIUM
  9. CITALOPRAM HYDROBROMIDE [Concomitant]
     Active Substance: CITALOPRAM HYDROBROMIDE
  10. CODEINE PHOSPHATE [Concomitant]
     Active Substance: CODEINE PHOSPHATE
  11. DENOSUMAB [Concomitant]
     Active Substance: DENOSUMAB
  12. DIMENHYDRINATE [Concomitant]
     Active Substance: DIMENHYDRINATE
  13. FERROUS FUMARATE [Concomitant]
     Active Substance: FERROUS FUMARATE
  14. FUSIDIC ACID [Concomitant]
     Active Substance: FUSIDIC ACID
  15. LANSOPRAZOLE [Concomitant]
     Active Substance: LANSOPRAZOLE
  16. LEFLUNOMIDE [Concomitant]
     Active Substance: LEFLUNOMIDE
  17. LOPERAMIDE [Concomitant]
     Active Substance: LOPERAMIDE
  18. MAGNESIUM [Concomitant]
     Active Substance: MAGNESIUM
  19. METOPROLOL [Concomitant]
     Active Substance: METOPROLOL
  20. MIDODRINE [Concomitant]
     Active Substance: MIDODRINE
  21. ONDANSETRON [Concomitant]
     Active Substance: ONDANSETRON
  22. POLYETHYLENE GLYCOL [Concomitant]
     Active Substance: POLYETHYLENE GLYCOL
  23. PREDNISONE [Concomitant]
     Active Substance: PREDNISONE
  24. PREGABALIN [Concomitant]
     Active Substance: PREGABALIN
  25. PROLIA [Concomitant]
     Active Substance: DENOSUMAB
  26. ROSUVASTATIN CALCIUM [Concomitant]
     Active Substance: ROSUVASTATIN CALCIUM
  27. SOLU-MEDROL [Concomitant]
     Active Substance: METHYLPREDNISOLONE SODIUM SUCCINATE
     Indication: Premedication
     Route: 042
     Dates: start: 20190502
  28. SULFASALAZINE [Concomitant]
     Active Substance: SULFASALAZINE
  29. TYLENOL [Concomitant]
     Active Substance: ACETAMINOPHEN
     Indication: Premedication
     Route: 048
     Dates: start: 20190502

REACTIONS (26)
  - Cerebrovascular accident [Unknown]
  - Wrist fracture [Unknown]
  - Hip fracture [Unknown]
  - Interstitial lung disease [Unknown]
  - Coronary artery disease [Unknown]
  - Gastrointestinal polyp haemorrhage [Unknown]
  - Joint swelling [Unknown]
  - Muscular weakness [Unknown]
  - Joint stiffness [Unknown]
  - Dyspnoea exertional [Unknown]
  - Osteoarthritis [Unknown]
  - Aortic aneurysm [Unknown]
  - Osteoporosis [Unknown]
  - Palatal ulcer [Unknown]
  - Rales [Unknown]
  - Rheumatoid nodule [Unknown]
  - Arthralgia [Unknown]
  - Asthenia [Unknown]
  - Finger deformity [Unknown]
  - Hand deformity [Unknown]
  - Sclerodactylia [Unknown]
  - Ill-defined disorder [Unknown]
  - Rheumatoid arthritis [Unknown]
  - Inflammatory marker increased [Unknown]
  - Joint dislocation [Unknown]
  - Drug ineffective [Unknown]

NARRATIVE: CASE EVENT DATE: 20190101
